FAERS Safety Report 23478485 (Version 1)
Quarter: 2024Q1

REPORT INFORMATION
  Report Type: Spontaneous
  Country: GB (occurrence: GB)
  Receive Date: 20240204
  Receipt Date: 20240204
  Transmission Date: 20240409
  Serious: No
  Sender: FDA-Public Use
  Company Number: GB-IPSEN Group, Research and Development-2023-26435

PATIENT
  Age: 55 Year
  Sex: Male

DRUGS (1)
  1. CABOMETYX [Suspect]
     Active Substance: CABOZANTINIB S-MALATE
     Indication: Clear cell renal cell carcinoma
     Dosage: UNKNOWN
     Route: 065
     Dates: start: 202304

REACTIONS (5)
  - Anal lesion excision [Unknown]
  - Tenderness [Unknown]
  - Erythema [Unknown]
  - Hair colour changes [Unknown]
  - Off label use [Unknown]

NARRATIVE: CASE EVENT DATE: 20230901
